FAERS Safety Report 11805184 (Version 1)
Quarter: 2015Q4

REPORT INFORMATION
  Report Type: Spontaneous
  Country: JP (occurrence: JP)
  Receive Date: 20151206
  Receipt Date: 20151206
  Transmission Date: 20160305
  Serious: Yes (Other)
  Sender: FDA-Public Use
  Company Number: JP-MYLANLABS-2015M1042188

PATIENT

DRUGS (11)
  1. DECADRON [Concomitant]
     Active Substance: DEXAMETHASONE
     Indication: PROPHYLAXIS
     Dosage: 8 MG, UNK
     Route: 048
     Dates: start: 20150408, end: 20150411
  2. ENDOXAN                            /00021101/ [Suspect]
     Active Substance: CYCLOPHOSPHAMIDE
     Indication: BREAST CANCER
     Dosage: 750 MG, CYCLE
     Route: 042
     Dates: start: 20150407
  3. PRIMPERAN [Concomitant]
     Active Substance: METOCLOPRAMIDE HYDROCHLORIDE
     Indication: PROPHYLAXIS
     Dosage: 10 MG, UNK
     Route: 042
     Dates: start: 20150407, end: 20150428
  4. EMEND [Concomitant]
     Active Substance: APREPITANT
     Indication: PROPHYLAXIS
     Dosage: 125 MG, QD
     Route: 048
     Dates: start: 20150407, end: 20150407
  5. DEXART [Concomitant]
     Active Substance: DEXAMETHASONE SODIUM PHOSPHATE
     Indication: PROPHYLAXIS
     Dosage: 9.9 MG, UNK
     Route: 042
     Dates: start: 20150407, end: 20150428
  6. ALOXI [Concomitant]
     Active Substance: PALONOSETRON HYDROCHLORIDE
     Indication: PROPHYLAXIS
     Dosage: 0.75 MG, UNK
     Route: 042
     Dates: start: 20150407, end: 20150428
  7. EPIRUBICIN HYDROCHLORIDE INJECTION 50MG ^NK^ [Suspect]
     Active Substance: EPIRUBICIN HYDROCHLORIDE
     Indication: BREAST CANCER
     Dosage: 150 MG, CYCLE
     Route: 041
     Dates: start: 20150407
  8. EMEND [Concomitant]
     Active Substance: APREPITANT
     Dosage: 80 MG, BID
     Route: 048
     Dates: start: 20150408, end: 20150409
  9. 5-FU                               /00098801/ [Suspect]
     Active Substance: FLUOROURACIL
     Indication: BREAST CANCER
     Dosage: 750 MG, CYCLE
     Route: 042
     Dates: start: 20150407
  10. FILGRASTIM [Suspect]
     Active Substance: FILGRASTIM
     Indication: NEUTROPENIA
     Dosage: 49 ?G/M2, UNK
     Route: 058
     Dates: start: 20150421
  11. FAMOTIDINE. [Concomitant]
     Active Substance: FAMOTIDINE
     Indication: PROPHYLAXIS
     Dosage: 20 MG, UNK
     Route: 048
     Dates: start: 20150407, end: 20150411

REACTIONS (3)
  - White blood cell count decreased [Recovered/Resolved]
  - Hepatic function abnormal [Recovering/Resolving]
  - Neutropenia [Recovered/Resolved]

NARRATIVE: CASE EVENT DATE: 20150421
